FAERS Safety Report 15931448 (Version 1)
Quarter: 2019Q1

REPORT INFORMATION
  Report Type: Spontaneous
  Country: FR (occurrence: FR)
  Receive Date: 20190207
  Receipt Date: 20190207
  Transmission Date: 20190417
  Serious: Yes (Hospitalization)
  Sender: FDA-Public Use
  Company Number: FR-SA-2019SA027160

PATIENT
  Age: 68 Year
  Sex: Female

DRUGS (1)
  1. OXALIPLATIN. [Suspect]
     Active Substance: OXALIPLATIN
     Indication: OVARIAN CANCER
     Dosage: 220 MG, TOTAL
     Route: 041
     Dates: start: 20181108

REACTIONS (2)
  - Hyperhidrosis [Recovered/Resolved]
  - Dysaesthesia [Recovered/Resolved with Sequelae]

NARRATIVE: CASE EVENT DATE: 20181108
